FAERS Safety Report 6526285-3 (Version None)
Quarter: 2009Q4

REPORT INFORMATION
  Report Type: 
  Country: None (occurrence: None)
  Receive Date: 20091228
  Receipt Date: 20091214
  Transmission Date: 20100525
  Serious: Yes (Hospitalization, Other)
  Sender: FDA-Public Use
  Company Number: 8054322

PATIENT
  Sex: Female

DRUGS (1)
  1. CERTOLIZUMAB PEGOL [Suspect]
     Indication: CROHN'S DISEASE
     Dosage: (400 MG, DOSE FREQ,: ONCE MONTHLY SUBCUTANEOUS)
     Route: 058
     Dates: start: 20090615, end: 20091001

REACTIONS (7)
  - ABDOMINAL PAIN [None]
  - CONVULSION [None]
  - DRUG INEFFECTIVE [None]
  - FATIGUE [None]
  - INFREQUENT BOWEL MOVEMENTS [None]
  - PAIN [None]
  - PNEUMONIA [None]
